FAERS Safety Report 9297223 (Version 1)
Quarter: 2013Q2

REPORT INFORMATION
  Report Type: Spontaneous
  Country: US (occurrence: US)
  Receive Date: 20130520
  Receipt Date: 20130520
  Transmission Date: 20140414
  Serious: No
  Sender: FDA-Public Use
  Company Number: US-BIOGENIDEC-2013BI038633

PATIENT
  Age: 32 Year
  Sex: Male

DRUGS (2)
  1. AVONEX [Suspect]
     Indication: MULTIPLE SCLEROSIS
     Route: 030
     Dates: start: 20130111
  2. PENICILLIN [Concomitant]

REACTIONS (3)
  - Drug interaction [Recovered/Resolved]
  - Myalgia [Recovered/Resolved with Sequelae]
  - Hypersensitivity [Recovered/Resolved]
